FAERS Safety Report 15945020 (Version 8)
Quarter: 2021Q2

REPORT INFORMATION
  Report Type: Report from Study
  Country: US (occurrence: US)
  Receive Date: 20190211
  Receipt Date: 20210528
  Transmission Date: 20210716
  Serious: Yes (Hospitalization, Other)
  Sender: FDA-Public Use
  Company Number: US-ACADIA PHARMACEUTICALS INC.-ACA-2018-011175

PATIENT
  Age: 71 Year
  Sex: Male

DRUGS (12)
  1. CLONAZEPAM. [Concomitant]
     Active Substance: CLONAZEPAM
  2. TRAMADOL. [Concomitant]
     Active Substance: TRAMADOL
  3. STOOL SOFTENER (DOCUSATE) [Concomitant]
     Active Substance: DOCUSATE
  4. OMEPRAZOLE. [Concomitant]
     Active Substance: OMEPRAZOLE
  5. NUPLAZID [Suspect]
     Active Substance: PIMAVANSERIN TARTRATE
     Dosage: 34 MG, QD
     Route: 048
     Dates: start: 202102
  6. ACETAMINOPHEN. [Concomitant]
     Active Substance: ACETAMINOPHEN
  7. NUPLAZID [Suspect]
     Active Substance: PIMAVANSERIN TARTRATE
     Indication: DELUSION
     Dosage: 34 MILLIGRAM QD
     Route: 048
     Dates: start: 20191013
  8. TIZANIDINE. [Concomitant]
     Active Substance: TIZANIDINE
  9. NUPLAZID [Suspect]
     Active Substance: PIMAVANSERIN TARTRATE
     Indication: PARKINSON^S DISEASE PSYCHOSIS
     Dosage: 34 MG, QD AT LUNCHTIME
     Route: 048
     Dates: start: 20191214
  10. NUPLAZID [Suspect]
     Active Substance: PIMAVANSERIN TARTRATE
     Dosage: 34 MG, QD
     Route: 048
     Dates: start: 202001, end: 202012
  11. NUPLAZID [Suspect]
     Active Substance: PIMAVANSERIN TARTRATE
     Indication: HALLUCINATION
     Dosage: 34 MG, QD AT LUNCHTIME
     Route: 048
     Dates: start: 20181025
  12. EXELON [Concomitant]
     Active Substance: RIVASTIGMINE TARTRATE

REACTIONS (31)
  - Amnesia [Not Recovered/Not Resolved]
  - Product dose omission issue [Not Recovered/Not Resolved]
  - Dysphonia [Unknown]
  - Hallucination, visual [Not Recovered/Not Resolved]
  - Throat tightness [Unknown]
  - Memory impairment [Unknown]
  - Somnambulism [Not Recovered/Not Resolved]
  - Drug ineffective [Unknown]
  - Drug ineffective [Unknown]
  - Hip fracture [Unknown]
  - Hip arthroplasty [Not Recovered/Not Resolved]
  - Abnormal behaviour [Not Recovered/Not Resolved]
  - Fatigue [Unknown]
  - Fall [Unknown]
  - Hallucination [Not Recovered/Not Resolved]
  - Abnormal dreams [Not Recovered/Not Resolved]
  - Pain [Not Recovered/Not Resolved]
  - Dysphagia [Not Recovered/Not Resolved]
  - Hallucination [Not Recovered/Not Resolved]
  - Neoplasm [Not Recovered/Not Resolved]
  - Movement disorder [Not Recovered/Not Resolved]
  - Back pain [Not Recovered/Not Resolved]
  - Condition aggravated [Unknown]
  - Dysstasia [Not Recovered/Not Resolved]
  - Somnambulism [Not Recovered/Not Resolved]
  - Dry mouth [Not Recovered/Not Resolved]
  - Delusion [Not Recovered/Not Resolved]
  - Amnesia [Not Recovered/Not Resolved]
  - Surgery [Not Recovered/Not Resolved]
  - Hallucination [Recovering/Resolving]
  - Tremor [Not Recovered/Not Resolved]

NARRATIVE: CASE EVENT DATE: 2018
